FAERS Safety Report 7335691-9 (Version None)
Quarter: 2011Q1

REPORT INFORMATION
  Report Type: 
  Country: None (occurrence: None)
  Receive Date: 20110307
  Receipt Date: 20110225
  Transmission Date: 20110831
  Serious: Yes (Hospitalization)
  Sender: FDA-Public Use
  Company Number: A0915408A

PATIENT
  Age: 73 Year
  Sex: Male

DRUGS (7)
  1. COUMADIN [Concomitant]
  2. DIGOXIN [Concomitant]
  3. VERAPAMIL EXTENDED-RELEASE [Concomitant]
  4. ADVAIR DISKUS 100/50 [Suspect]
     Indication: CHRONIC OBSTRUCTIVE PULMONARY DISEASE
     Dosage: 1PUFF TWICE PER DAY
     Route: 055
     Dates: start: 20010101
  5. LANOXIN [Concomitant]
  6. COMBIVENT [Concomitant]
  7. SINEMET [Concomitant]

REACTIONS (1)
  - PNEUMONIA [None]
